FAERS Safety Report 21167794 (Version 4)
Quarter: 2023Q1

REPORT INFORMATION
  Report Type: Spontaneous
  Country: US (occurrence: US)
  Receive Date: 20220803
  Receipt Date: 20230324
  Transmission Date: 20230417
  Serious: Yes (Other)
  Sender: FDA-Public Use
  Company Number: US-Blueprint Medicines Corporation-297

PATIENT
  Sex: Male

DRUGS (2)
  1. AYVAKIT [Suspect]
     Active Substance: AVAPRITINIB
     Indication: Systemic mastocytosis
     Route: 065
     Dates: start: 20220727
  2. AYVAKIT [Suspect]
     Active Substance: AVAPRITINIB
     Route: 048
     Dates: start: 20220727

REACTIONS (10)
  - Ascites [Unknown]
  - Muscular weakness [Unknown]
  - Oedema peripheral [Unknown]
  - Rash [Unknown]
  - Oedema [Recovering/Resolving]
  - Anaemia [Unknown]
  - Platelet count decreased [Unknown]
  - Full blood count decreased [Unknown]
  - Fluid retention [Unknown]
  - Hair colour changes [Unknown]
